FAERS Safety Report 8080214-2 (Version None)
Quarter: 2012Q1

REPORT INFORMATION
  Report Type: 
  Country: None (occurrence: None)
  Receive Date: 20120130
  Receipt Date: 20120125
  Transmission Date: 20120608
  Serious: Yes (Hospitalization)
  Sender: FDA-Public Use
  Company Number: IT-BAYER-2012-008167

PATIENT
  Age: 53 Year
  Sex: Male

DRUGS (4)
  1. GLUCOPHAGE [Concomitant]
     Indication: TYPE 2 DIABETES MELLITUS
     Dosage: DAILY DOSE 2 G
     Route: 048
  2. RITUXIMAB [Concomitant]
     Dosage: DAILY DOSE 375 MG/M2, FOR 4 CYCLES
     Dates: start: 20111001
  3. NEXAVAR [Suspect]
     Indication: RENAL CELL CARCINOMA RECURRENT
     Dosage: DAILY DOSE 800 MG
     Route: 048
     Dates: start: 20110905, end: 20110923
  4. REPAGLINIDE [Concomitant]
     Indication: TYPE 2 DIABETES MELLITUS
     Dosage: DAILY DOSE 6 MG
     Route: 048

REACTIONS (1)
  - ACQUIRED HAEMOPHILIA [None]
